FAERS Safety Report 17798213 (Version 4)
Quarter: 2021Q1

REPORT INFORMATION
  Report Type: Report from Study
  Country: IN (occurrence: IN)
  Receive Date: 20200518
  Receipt Date: 20210222
  Transmission Date: 20210419
  Serious: Yes (Hospitalization)
  Sender: FDA-Public Use
  Company Number: IN-ROCHE-2597931

PATIENT
  Age: 50 Year
  Sex: Female
  Weight: 70 kg

DRUGS (14)
  1. RITUXIMAB. [Suspect]
     Active Substance: RITUXIMAB
     Indication: GRANULOMATOSIS WITH POLYANGIITIS
     Dosage: VIAL 100MG/10ML AND 500MG/50ML, DOSE REGIMEN?ADMINISTERED FOR 4 WEEKS?23/OCT/2019, DATE OF MOST RECE
     Route: 042
     Dates: start: 20191001, end: 20191023
  2. AMLODIPINE [Concomitant]
     Active Substance: AMLODIPINE BESYLATE
     Dates: start: 20200508
  3. FOLVITE [Concomitant]
     Active Substance: FOLIC ACID
     Dates: start: 20200508
  4. ALENDRONATE [Concomitant]
     Active Substance: ALENDRONATE SODIUM
     Dates: start: 20200508
  5. AUGMENTIN [Concomitant]
     Active Substance: AMOXICILLIN\CLAVULANATE POTASSIUM
     Dates: start: 20200508, end: 20200514
  6. THYRONORM [Concomitant]
     Active Substance: LEVOTHYROXINE
     Dates: start: 20200507
  7. BACTRIM DS [Concomitant]
     Active Substance: SULFAMETHOXAZOLE\TRIMETHOPRIM
     Dates: start: 20200508
  8. WYSOLONE [Concomitant]
     Active Substance: PREDNISOLONE
     Dates: start: 20200508, end: 20200512
  9. AUGMENTIN [Concomitant]
     Active Substance: AMOXICILLIN\CLAVULANATE POTASSIUM
     Dates: start: 20200508, end: 20200514
  10. WYSOLONE [Concomitant]
     Active Substance: PREDNISOLONE
     Dates: start: 20200513
  11. OSTEOFIT?C [Concomitant]
     Dates: start: 20200508
  12. HYDROXYCHLOROQUINE [Concomitant]
     Active Substance: HYDROXYCHLOROQUINE
     Dates: start: 20200508
  13. THYRONORM [Concomitant]
     Active Substance: LEVOTHYROXINE
     Dates: start: 20200508
  14. FOLITRAX [METHOTREXATE] [Concomitant]
     Dates: start: 20200508

REACTIONS (3)
  - Cerebrovascular accident [Recovered/Resolved]
  - Vasculitis [Recovered/Resolved]
  - Partial seizures [Recovered/Resolved]

NARRATIVE: CASE EVENT DATE: 20200504
